FAERS Safety Report 8128063-0 (Version None)
Quarter: 2012Q1

REPORT INFORMATION
  Report Type: 
  Country: None (occurrence: None)
  Receive Date: 20120210
  Receipt Date: 20120201
  Transmission Date: 20120608
  Serious: Yes (Other)
  Sender: FDA-Public Use
  Company Number: US-AMGEN-US373375

PATIENT
  Age: 19 Year
  Sex: Female
  Weight: 69 kg

DRUGS (1)
  1. ETANERCEPT [Suspect]
     Indication: ANKYLOSING SPONDYLITIS
     Dosage: 50 MG, QWK
     Route: 058

REACTIONS (3)
  - COGNITIVE DISORDER [None]
  - DEMYELINATION [None]
  - TREMOR [None]
